FAERS Safety Report 14376058 (Version 1)
Quarter: 2018Q1

REPORT INFORMATION
  Report Type: Spontaneous
  Country: FR (occurrence: FR)
  Receive Date: 20180111
  Receipt Date: 20180111
  Transmission Date: 20180509
  Serious: Yes (Hospitalization)
  Sender: FDA-Public Use
  Company Number: FR-PFIZER INC-2018010823

PATIENT
  Age: 49 Year
  Sex: Male
  Weight: 100 kg

DRUGS (6)
  1. OXALIPLATINE [Concomitant]
     Active Substance: OXALIPLATIN
     Indication: COLON NEOPLASM
     Dosage: 120 MG, UNK
     Route: 042
     Dates: start: 20171127
  2. TAZOCILLINE [Suspect]
     Active Substance: PIPERACILLIN SODIUM\TAZOBACTAM SODIUM
     Indication: INFECTION
     Dosage: 1 DF, SINGLE
     Route: 042
     Dates: start: 20171128
  3. FLUOROURACILE [Concomitant]
     Active Substance: FLUOROURACIL
     Indication: COLON NEOPLASM
     Dosage: 11500 MG, UNK
     Route: 042
     Dates: start: 20171127
  4. EMEND [Concomitant]
     Active Substance: APREPITANT
     Indication: PREMEDICATION
     Dosage: 1 DF, 1X/DAY
     Route: 048
     Dates: start: 20171127
  5. LANSOPRAZOLE. [Concomitant]
     Active Substance: LANSOPRAZOLE
     Dosage: 30 MG, UNK
     Route: 048
  6. TEICOPLANINE [Suspect]
     Active Substance: TEICOPLANIN
     Dosage: 400 MG, UNK
     Route: 042
     Dates: start: 20171128

REACTIONS (5)
  - Fall [Recovered/Resolved]
  - Hyperhidrosis [Recovered/Resolved]
  - Erythema [Recovered/Resolved]
  - Hypotension [Recovered/Resolved]
  - Malaise [Recovered/Resolved]

NARRATIVE: CASE EVENT DATE: 20171128
